FAERS Safety Report 10072430 (Version 2)
Quarter: 2014Q2

REPORT INFORMATION
  Report Type: Spontaneous
  Country: US (occurrence: US)
  Receive Date: 20140411
  Receipt Date: 20140604
  Transmission Date: 20141212
  Serious: Yes (Hospitalization, Other)
  Sender: FDA-Public Use
  Company Number: US-NOVOPROD-405874

PATIENT
  Age: 62 Year
  Sex: Male
  Weight: 99.77 kg

DRUGS (12)
  1. VICTOZA [Suspect]
     Indication: TYPE 2 DIABETES MELLITUS
     Dosage: 18 UG, QD
     Route: 058
     Dates: start: 20111114, end: 20120126
  2. VICTOZA [Suspect]
     Dosage: 18 UG, QD
     Route: 058
     Dates: start: 20120516, end: 20120914
  3. LANTUS [Concomitant]
     Indication: TYPE 2 DIABETES MELLITUS
     Dosage: UNK
  4. CARVEDILOL [Concomitant]
     Indication: CARDIAC FAILURE
     Dosage: UNK
  5. CARVEDILOL [Concomitant]
     Indication: HYPERTENSION
  6. FINASTERIDE [Concomitant]
     Indication: PROSTATOMEGALY
     Dosage: UNK
  7. SYNTHROID [Concomitant]
     Indication: HYPOTHYROIDISM
     Dosage: UNK
  8. TRILIPIX [Concomitant]
     Indication: BLOOD CHOLESTEROL INCREASED
     Dosage: UNK
  9. TRILIPIX [Concomitant]
     Indication: BLOOD TRIGLYCERIDES INCREASED
  10. SIMVASTATIN [Concomitant]
     Indication: BLOOD CHOLESTEROL INCREASED
     Dosage: UNK
  11. BUPROPION [Concomitant]
     Indication: DEPRESSION
     Dosage: UNK
     Dates: start: 201208
  12. ZOLPIDEM [Concomitant]
     Indication: INITIAL INSOMNIA
     Dosage: UNK
     Dates: start: 201310

REACTIONS (2)
  - Pancreatic carcinoma [Unknown]
  - Pancreatitis [Unknown]
